FAERS Safety Report 6670267-8 (Version None)
Quarter: 2010Q2

REPORT INFORMATION
  Report Type: 
  Country: None (occurrence: None)
  Receive Date: 20100405
  Receipt Date: 20100320
  Transmission Date: 20101027
  Serious: Yes (Hospitalization)
  Sender: FDA-Public Use
  Company Number: 009145

PATIENT
  Sex: Female

DRUGS (2)
  1. LEVETIRACETAM [Suspect]
     Indication: COMPLEX PARTIAL SEIZURES
     Dosage: (1250 MG BID ORAL)
     Route: 048
     Dates: start: 20071010
  2. CARBAMAZEPINE [Suspect]
     Dosage: (ORAL)
     Route: 048

REACTIONS (3)
  - DIZZINESS [None]
  - DRUG TOXICITY [None]
  - OVERDOSE [None]
